FAERS Safety Report 25769310 (Version 1)
Quarter: 2025Q3

REPORT INFORMATION
  Report Type: Spontaneous
  Country: US (occurrence: US)
  Receive Date: 20250906
  Receipt Date: 20250906
  Transmission Date: 20251021
  Serious: No
  Sender: BAUSCH AND LOMB
  Company Number: US-BAUSCHBL-2025BNL015444

PATIENT
  Age: 70 Year
  Sex: Female

DRUGS (3)
  1. MIEBO [Suspect]
     Active Substance: PERFLUOROHEXYLOCTANE
     Indication: Product used for unknown indication
     Dosage: 1 DROP IN EACH EYE 4 TIMES DAILY
     Route: 065
  2. XIIDRA [Suspect]
     Active Substance: LIFITEGRAST
     Indication: Product used for unknown indication
     Route: 065
  3. RESTASIS [Concomitant]
     Active Substance: CYCLOSPORINE
     Indication: Product used for unknown indication
     Route: 065

REACTIONS (8)
  - Therapeutic product effect decreased [Unknown]
  - Drug ineffective [Unknown]
  - Product odour abnormal [Unknown]
  - Product delivery mechanism issue [Unknown]
  - Liquid product physical issue [Unknown]
  - Wrong dose [Unknown]
  - Product complaint [Unknown]
  - Wrong technique in product usage process [Unknown]
